FAERS Safety Report 15792752 (Version 2)
Quarter: 2020Q1

REPORT INFORMATION
  Report Type: Report from Study
  Country: DE (occurrence: DE)
  Receive Date: 20190107
  Receipt Date: 20200330
  Transmission Date: 20200409
  Serious: Yes (Other)
  Sender: FDA-Public Use
  Company Number: DE-BRISTOL-MYERS SQUIBB COMPANY-BMS-2019-000460

PATIENT
  Age: 83 Year
  Sex: Male
  Weight: 75 kg

DRUGS (1)
  1. APIXABAN [Suspect]
     Active Substance: APIXABAN
     Indication: EMBOLISM VENOUS
     Dosage: 2.5 MILLIGRAM, BID
     Route: 048
     Dates: start: 20171116

REACTIONS (3)
  - Deep vein thrombosis [Recovered/Resolved]
  - Prescribed underdose [Unknown]
  - Pelvic venous thrombosis [Recovered/Resolved]

NARRATIVE: CASE EVENT DATE: 20180416
